FAERS Safety Report 13898968 (Version 1)
Quarter: 2017Q3

REPORT INFORMATION
  Report Type: Spontaneous
  Country: US (occurrence: US)
  Receive Date: 20170823
  Receipt Date: 20170823
  Transmission Date: 20171127
  Serious: No
  Sender: FDA-Public Use
  Company Number: US-JAZZ-2017-US-007215

PATIENT
  Sex: Female

DRUGS (26)
  1. XYREM [Suspect]
     Active Substance: SODIUM OXYBATE
     Dosage: 3 G, BID
     Route: 048
     Dates: start: 201210
  2. FLONASE [Concomitant]
     Active Substance: FLUTICASONE PROPIONATE
  3. CITRACAL                           /00751520/ [Concomitant]
     Active Substance: CALCIUM CITRATE
  4. GAS RELIEF [Concomitant]
     Active Substance: DIMETHICONE
  5. LIMBREL [Concomitant]
     Active Substance: DIETARY SUPPLEMENT\FLAVOCOXID
  6. VITAMIN B12 [Concomitant]
     Active Substance: CYANOCOBALAMIN
  7. XYREM [Suspect]
     Active Substance: SODIUM OXYBATE
     Dosage: DOSE ADJUSTMENT
     Route: 048
     Dates: start: 200904, end: 201210
  8. TURMERIC                           /01079601/ [Concomitant]
     Active Substance: HERBALS\TURMERIC
  9. XYREM [Suspect]
     Active Substance: SODIUM OXYBATE
     Indication: NARCOLEPSY
     Dosage: 2.25 G, BID
     Route: 048
     Dates: start: 200904, end: 200904
  10. ESTRACE [Concomitant]
     Active Substance: ESTRADIOL
  11. AZELASTINE HCL [Concomitant]
     Active Substance: AZELASTINE HYDROCHLORIDE
  12. RANITIDINE. [Concomitant]
     Active Substance: RANITIDINE
  13. ZINC CHELATE [Concomitant]
  14. BECONASE AQ [Concomitant]
     Active Substance: BECLOMETHASONE DIPROPIONATE MONOHYDRATE
  15. CYMBALTA [Concomitant]
     Active Substance: DULOXETINE HYDROCHLORIDE
  16. OMEGA 3                            /01333901/ [Concomitant]
     Active Substance: FISH OIL\TOCOPHEROL
  17. VITAMIN C [Concomitant]
     Active Substance: ASCORBIC ACID
  18. VITAMIN D2 [Concomitant]
     Active Substance: ERGOCALCIFEROL
  19. AMOXI-CLAV [Concomitant]
     Active Substance: AMOXICILLIN\CLAVULANATE POTASSIUM
  20. HEMORRHOIDAL                       /00116302/ [Concomitant]
  21. MAGNESIUM [Concomitant]
     Active Substance: MAGNESIUM
  22. PLAQUENIL                          /00072602/ [Concomitant]
     Active Substance: HYDROXYCHLOROQUINE DIPHOSPHATE
  23. TRICOR                             /00090101/ [Concomitant]
     Active Substance: ADENOSINE
  24. GLUCOSAMINE [Concomitant]
     Active Substance: GLUCOSAMINE
  25. MACRODANTIN [Concomitant]
     Active Substance: NITROFURANTOIN
  26. ACETAMINOPHEN. [Concomitant]
     Active Substance: ACETAMINOPHEN

REACTIONS (2)
  - Wrong technique in product usage process [Unknown]
  - Abdominal pain upper [Unknown]
